FAERS Safety Report 8270879-4 (Version None)
Quarter: 2012Q2

REPORT INFORMATION
  Report Type: 
  Country: None (occurrence: None)
  Receive Date: 20120410
  Receipt Date: 20120410
  Transmission Date: 20120825
  Serious: Yes (Other)
  Sender: FDA-Public Use
  Company Number: None

PATIENT
  Age: 23 Year
  Sex: Male
  Weight: 81.646 kg

DRUGS (1)
  1. LUNESTA [Suspect]

REACTIONS (2)
  - ABNORMAL SLEEP-RELATED EVENT [None]
  - SOMNAMBULISM [None]
